FAERS Safety Report 4591775-X (Version None)
Quarter: 2005Q1

REPORT INFORMATION
  Report Type: 
  Country: None (occurrence: None)
  Receive Date: 20050218
  Receipt Date: 20050204
  Transmission Date: 20050727
  Serious: Yes (Hospitalization)
  Sender: FDA-Public Use
  Company Number: 2005025739

PATIENT
  Age: 20 Month
  Sex: Male
  Weight: 11 kg

DRUGS (1)
  1. ROGAINE [Suspect]
     Indication: ACCIDENTAL EXPOSURE
     Dosage: UNSPECIFIED AMOUNT ONCE, ORAL
     Route: 048
     Dates: start: 20050204, end: 20050204

REACTIONS (3)
  - ACCIDENTAL EXPOSURE [None]
  - BLOOD PRESSURE DIASTOLIC DECREASED [None]
  - SINUS TACHYCARDIA [None]
